FAERS Safety Report 10050693 (Version 1)
Quarter: 2014Q2

REPORT INFORMATION
  Report Type: Spontaneous
  Country: TR (occurrence: TR)
  Receive Date: 20140401
  Receipt Date: 20140401
  Transmission Date: 20141212
  Serious: Yes (Other)
  Sender: FDA-Public Use
  Company Number: TR-JNJFOC-20140312164

PATIENT
  Age: 86 Year
  Sex: Female

DRUGS (2)
  1. DOXORUBICIN [Suspect]
     Indication: LEIOMYOSARCOMA
     Route: 042
  2. DOXORUBICIN [Suspect]
     Indication: LEIOMYOSARCOMA
     Route: 042

REACTIONS (5)
  - Leiomyosarcoma recurrent [Not Recovered/Not Resolved]
  - Vomiting [Recovered/Resolved]
  - Fatigue [Unknown]
  - Nausea [Unknown]
  - Off label use [Unknown]
